FAERS Safety Report 8089808-1 (Version None)
Quarter: 2012Q1

REPORT INFORMATION
  Report Type: 
  Country: None (occurrence: None)
  Receive Date: 20120128
  Receipt Date: 20110713
  Transmission Date: 20120608
  Serious: No
  Sender: FDA-Public Use
  Company Number: US-ABBOTT-11P-163-0838719-00

PATIENT
  Age: 59 Year
  Sex: Female

DRUGS (7)
  1. HUMIRA [Suspect]
     Indication: PSORIASIS
     Dates: start: 20110210
  2. MULTI-VITAMINS [Concomitant]
     Indication: VITAMIN SUPPLEMENTATION
  3. FLAXSEED OIL [Concomitant]
     Indication: MEDICAL DIET
  4. ESTRADIOL [Concomitant]
     Indication: HORMONE REPLACEMENT THERAPY
  5. CALCIUM [Concomitant]
     Indication: BLOOD CALCIUM
  6. FISH OIL [Concomitant]
     Indication: MEDICAL DIET
  7. VITAMIN E [Concomitant]
     Indication: VITAMIN SUPPLEMENTATION

REACTIONS (3)
  - NASOPHARYNGITIS [None]
  - LUNG INFILTRATION [None]
  - PRODUCTIVE COUGH [None]
